FAERS Safety Report 5859350-4 (Version None)
Quarter: 2008Q3

REPORT INFORMATION
  Report Type: 
  Country: None (occurrence: None)
  Receive Date: 20080825
  Receipt Date: 20080814
  Transmission Date: 20090109
  Serious: Yes (Life-Threatening)
  Sender: FDA-Public Use
  Company Number: 100#03#2008-04100

PATIENT
  Age: 27 Year
  Sex: Female

DRUGS (3)
  1. AZITHROMYCIN (AZTTHROMYCIN) [Suspect]
     Indication: CHLAMYDIAL INFECTION
     Dosage: 1 G; ORAL
     Route: 048
     Dates: start: 20080730
  2. PROCHLORPERAZINE MALEATE [Suspect]
     Indication: NAUSEA
     Dosage: ORAL
     Route: 048
  3. MISOPROSTOL [Suspect]
     Indication: PROPHYLAXIS AGAINST GASTROINTESTINAL ULCER
     Dosage: 800 MG
     Dates: start: 20080730

REACTIONS (3)
  - LIP SWELLING [None]
  - RASH GENERALISED [None]
  - SENSATION OF FOREIGN BODY [None]
